FAERS Safety Report 11653759 (Version 1)
Quarter: 2015Q4

REPORT INFORMATION
  Report Type: Other
  Country: DE (occurrence: DE)
  Receive Date: 20151022
  Receipt Date: 20151022
  Transmission Date: 20160304
  Serious: Yes (Other)
  Sender: FDA-Public Use
  Company Number: DE-MYLANLABS-2015M1035000

PATIENT

DRUGS (5)
  1. CANDESARTAN ACTAVIS [Suspect]
     Active Substance: CANDESARTAN
     Dosage: UNK
  2. METOPROLOL 100 MG [Suspect]
     Active Substance: METOPROLOL
     Dosage: UNK
  3. AMLODIPINE [Suspect]
     Active Substance: AMLODIPINE BESYLATE
     Dosage: UNK
  4. NITROGLYCERIN. [Concomitant]
     Active Substance: NITROGLYCERIN
     Indication: HYPERTENSION
     Dosage: UNK
  5. ENALAPRIL [Suspect]
     Active Substance: ENALAPRIL
     Dosage: UNK

REACTIONS (5)
  - Back pain [Unknown]
  - Neuralgia [Unknown]
  - Myalgia [Unknown]
  - Abdominal distension [Unknown]
  - Psoriasis [Unknown]

NARRATIVE: CASE EVENT DATE: 2014
